FAERS Safety Report 8057612-6 (Version None)
Quarter: 2012Q1

REPORT INFORMATION
  Report Type: 
  Country: None (occurrence: None)
  Receive Date: 20120120
  Receipt Date: 20081106
  Transmission Date: 20120608
  Serious: No
  Sender: FDA-Public Use
  Company Number: US-BIOGENIDEC-2008BI029943

PATIENT
  Sex: Female

DRUGS (1)
  1. TYSABRI [Suspect]
     Indication: MULTIPLE SCLEROSIS
     Route: 042
     Dates: start: 20080809

REACTIONS (4)
  - PARAESTHESIA [None]
  - MEMORY IMPAIRMENT [None]
  - HEADACHE [None]
  - BALANCE DISORDER [None]
